FAERS Safety Report 19089955 (Version 1)
Quarter: 2021Q2

REPORT INFORMATION
  Report Type: Report from Study
  Country: US (occurrence: US)
  Receive Date: 20210404
  Receipt Date: 20210404
  Transmission Date: 20210717
  Serious: Yes (Hospitalization, Other)
  Sender: FDA-Public Use
  Company Number: NVSC2021US071045

PATIENT
  Sex: Female

DRUGS (1)
  1. OMNITROPE [Suspect]
     Active Substance: SOMATROPIN
     Indication: PRODUCT USED FOR UNKNOWN INDICATION
     Dosage: UNK
     Route: 065

REACTIONS (10)
  - Weight decreased [Recovered/Resolved]
  - Somnambulism [Unknown]
  - Intervertebral disc protrusion [Unknown]
  - Thoracic vertebral fracture [Unknown]
  - Head injury [Unknown]
  - Weight increased [Unknown]
  - Dizziness [Unknown]
  - Stress fracture [Unknown]
  - Haemangioma [Unknown]
  - Fall [Unknown]
